FAERS Safety Report 15163672 (Version 1)
Quarter: 2018Q3

REPORT INFORMATION
  Report Type: Report from Study
  Country: ES (occurrence: ES)
  Receive Date: 20180719
  Receipt Date: 20180719
  Transmission Date: 20181010
  Serious: Yes (Other)
  Sender: FDA-Public Use
  Company Number: ES-TEVA-2018-ES-928615

PATIENT
  Age: 76 Year
  Sex: Male

DRUGS (6)
  1. EUTIROX 25 [Concomitant]
     Dosage: 25 MICROGRAM DAILY;
     Route: 048
     Dates: start: 20010101
  2. PARACETAMOL [Concomitant]
     Active Substance: ACETAMINOPHEN
     Route: 042
     Dates: start: 20170903
  3. PANTOPRAZOL (7275A) [Concomitant]
     Active Substance: PANTOPRAZOLE
     Dosage: 40 MILLIGRAM DAILY;
     Route: 042
     Dates: start: 20170903
  4. LEVOFLOXACINO (2791A) [Suspect]
     Active Substance: LEVOFLOXACIN
     Dosage: 500 MILLIGRAM DAILY;
     Route: 042
     Dates: start: 20170903, end: 20170925
  5. LINEZOLID (1279A) [Suspect]
     Active Substance: LINEZOLID
     Indication: PNEUMONIA
     Dosage: 600 MILLIGRAM DAILY;
     Route: 042
     Dates: start: 20170918, end: 20170925
  6. AZTREONAM (2340A) [Suspect]
     Active Substance: AZTREONAM
     Indication: PNEUMONIA
     Route: 042
     Dates: start: 20170908, end: 20171010

REACTIONS (1)
  - Hepatitis cholestatic [Recovered/Resolved]

NARRATIVE: CASE EVENT DATE: 20170928
